FAERS Safety Report 4358698-2 (Version None)
Quarter: 2004Q2

REPORT INFORMATION
  Report Type: 
  Country: None (occurrence: None)
  Receive Date: 20040511
  Receipt Date: 20040428
  Transmission Date: 20050107
  Serious: Yes (Hospitalization, Other)
  Sender: FDA-Public Use
  Company Number: 001-0342-M0000003

PATIENT
  Sex: Female

DRUGS (5)
  1. CELONTIN [Suspect]
     Indication: CONVULSION
     Dosage: 300 MG TWICE DAILY
     Dates: end: 20001117
  2. DILANTIN [Suspect]
     Indication: CONVULSION
  3. CARBAMAZEPINE [Suspect]
     Indication: CONVULSION
     Dates: start: 19810101
  4. VALPROATE SODIUM [Suspect]
     Indication: CONVULSION
  5. PRIMIDONE [Concomitant]

REACTIONS (7)
  - BLOOD AMYLASE ABNORMAL [None]
  - DRUG INEFFECTIVE [None]
  - FULL BLOOD COUNT ABNORMAL [None]
  - GASTROINTESTINAL DISORDER [None]
  - PETIT MAL EPILEPSY [None]
  - PHARMACEUTICAL PRODUCT COMPLAINT [None]
  - WEIGHT INCREASED [None]
